FAERS Safety Report 18641770 (Version 1)
Quarter: 2020Q4

REPORT INFORMATION
  Report Type: Spontaneous
  Country: GB (occurrence: GB)
  Receive Date: 20201221
  Receipt Date: 20201221
  Transmission Date: 20210114
  Serious: Yes (Other)
  Sender: FDA-Public Use
  Company Number: GB-ACCORD-211592

PATIENT
  Age: 57 Year
  Sex: Female
  Weight: 71 kg

DRUGS (16)
  1. MENTHA X PIPERITA [Concomitant]
     Active Substance: HERBALS
     Dates: start: 20200616
  2. TEGRETOL [Concomitant]
     Active Substance: CARBAMAZEPINE
     Dates: start: 20200807
  3. HYOSCINE [Concomitant]
     Active Substance: SCOPOLAMINE
     Dosage: TO BE TAKEN THREE TIMES DAILY WHEN REQUIRED
     Dates: start: 20200616, end: 20200904
  4. OTOMIZE (ACETIC ACID (+) DEXAMETHASONE (+) NEOMYCIN SULFATE) [Concomitant]
     Active Substance: ACETIC ACID\DEXAMETHASONE\NEOMYCIN SULFATE
     Dosage: OTITIS EXTERNA (2ND LINE): SPRAY ONE DOSE INTO ...
     Dates: start: 20201019, end: 20201026
  5. MEBEVERINE [Concomitant]
     Active Substance: MEBEVERINE
     Dates: start: 20200617
  6. CITALOPRAM [Concomitant]
     Active Substance: CITALOPRAM HYDROBROMIDE
     Dates: start: 20200330
  7. ZEROCREAM [Concomitant]
     Dosage: APPLY 1-2 TIMES A DAY TO AFFECTED AREA(S) AS NE...
     Dates: start: 20191211
  8. LAXIDO [Concomitant]
     Active Substance: POLYETHYLENE GLYCOL 3350\POTASSIUM CHLORIDE\SODIUM BICARBONATE\SODIUM CHLORIDE
     Dosage: TAKE ONE OR TWO SACHET DAILY
     Dates: start: 20201106
  9. OVESTIN [Concomitant]
     Active Substance: ESTRIOL
     Dosage: APPLY AT NIGHT OR DAILY FOR 2 WKS THEN TWICE WE...
     Dates: start: 20200513
  10. AMITRIPTYLINE [Suspect]
     Active Substance: AMITRIPTYLINE
     Indication: PRODUCT USED FOR UNKNOWN INDICATION
     Dosage: AT NIGHT
     Dates: start: 20201029
  11. LANSOPRAZOLE. [Concomitant]
     Active Substance: LANSOPRAZOLE
     Dosage: TAKE ONE ONCE OR TWICE DAILY
     Dates: start: 20200513
  12. ZAPAIN [Concomitant]
     Active Substance: ACETAMINOPHEN\CODEINE PHOSPHATE
     Dosage: TAKE 1 OR 2 TABLETS 4 TIMES/DAY WHEN REQUIRED
     Dates: start: 20200807, end: 20200904
  13. ELOCON [Concomitant]
     Active Substance: MOMETASONE FUROATE
     Dosage: APPLY TWICE A DAY AS REQUIRED
     Dates: start: 20191211
  14. SALBUTAMOL [Concomitant]
     Active Substance: ALBUTEROL
     Dosage: INHALE 2 DOSES 30 SECONDS APART IF SYMPTOMATIC
     Route: 055
     Dates: start: 20190227
  15. CLENIL MODULITE [Concomitant]
     Active Substance: BECLOMETHASONE DIPROPIONATE
     Dates: start: 20200110
  16. SOLIFENACIN [Concomitant]
     Active Substance: SOLIFENACIN
     Dates: start: 20200616

REACTIONS (4)
  - Condition aggravated [Unknown]
  - Nightmare [Unknown]
  - Dry mouth [Recovering/Resolving]
  - Generalised tonic-clonic seizure [Unknown]

NARRATIVE: CASE EVENT DATE: 20201130
